FAERS Safety Report 5468168-6 (Version None)
Quarter: 2007Q3

REPORT INFORMATION
  Report Type: 
  Country: None (occurrence: None)
  Receive Date: 20070926
  Receipt Date: 20070912
  Transmission Date: 20080115
  Serious: Yes (Hospitalization)
  Sender: FDA-Public Use
  Company Number: US-ELI_LILLY_AND_COMPANY-US200709002503

PATIENT
  Sex: Female

DRUGS (3)
  1. FORTEO [Suspect]
     Dosage: UNK, UNK
     Dates: start: 20060101
  2. CALCIUM W/VITAMIN D NOS [Concomitant]
  3. VITAMINS NOS [Concomitant]

REACTIONS (2)
  - FALL [None]
  - UPPER LIMB FRACTURE [None]
